FAERS Safety Report 7287467-9 (Version None)
Quarter: 2011Q1

REPORT INFORMATION
  Report Type: 
  Country: None (occurrence: None)
  Receive Date: 20110211
  Receipt Date: 20110201
  Transmission Date: 20110831
  Serious: Yes (Other)
  Sender: FDA-Public Use
  Company Number: CA-JNJFOC-20110200947

PATIENT
  Sex: Male
  Weight: 86.18 kg

DRUGS (8)
  1. REMICADE [Suspect]
     Indication: ANKYLOSING SPONDYLITIS
     Route: 042
  2. FINASTERIDE [Concomitant]
     Indication: PROSTATIC DISORDER
  3. TYLENOL (CAPLET) [Concomitant]
     Dosage: 2 PRN
  4. LOPRESSOR SR [Concomitant]
  5. VASOTEC [Concomitant]
  6. FERROUS GLUCONATE [Concomitant]
  7. TRAZODONE [Concomitant]
     Dosage: 25-50 MG HS PRN
  8. LANSOPRAZOLE [Concomitant]

REACTIONS (3)
  - URINARY TRACT INFECTION [None]
  - DIVERTICULUM [None]
  - RASH [None]
